FAERS Safety Report 4289225-6 (Version None)
Quarter: 2004Q1

REPORT INFORMATION
  Report Type: 
  Country: None (occurrence: None)
  Receive Date: 20040206
  Receipt Date: 20040129
  Transmission Date: 20041129
  Serious: Yes (Other)
  Sender: FDA-Public Use
  Company Number: 2003123296

PATIENT
  Age: 68 Year
  Sex: Female
  Weight: 57 kg

DRUGS (6)
  1. SULPERAZON (CEFOPERAZONE, SULBACTAM) [Suspect]
     Indication: PNEUMONIA
     Dosage: 2 GRAM (BID), INTRAVENOUS
     Route: 042
     Dates: start: 20031027, end: 20031102
  2. FAMOTIDINE [Suspect]
     Indication: GASTRITIS
     Dosage: 20 MG (DAILY), INTRAVENOUS
     Route: 042
     Dates: start: 20031024, end: 20031109
  3. VANCOMYCIN HCL [Suspect]
     Indication: ILL-DEFINED DISORDER
     Dosage: 1 GRAM (DAILY), INTRAVENOUS
     Route: 042
     Dates: start: 20031029, end: 20031029
  4. MINOCYCLINE HYDROCHLORIDE [Suspect]
     Indication: ILL-DEFINED DISORDER
     Dosage: 100 MG (DAILY), INTRAVENOUS
     Route: 042
     Dates: start: 20031030, end: 20031105
  5. ALL OTHER THERAPEUTIC PRODUCTS [Suspect]
     Indication: ILL-DEFINED DISORDER
     Dosage: 150 MG (DAILY), INTRAVENOUS
     Route: 042
     Dates: start: 20031029, end: 20031105
  6. PIPERACILLIN SODIUM [Concomitant]

REACTIONS (8)
  - CARDIAC FAILURE [None]
  - DISSEMINATED INTRAVASCULAR COAGULATION [None]
  - LIVER DISORDER [None]
  - LYMPHOCYTE STIMULATION TEST POSITIVE [None]
  - RENAL FAILURE ACUTE [None]
  - SEPSIS [None]
  - STEVENS-JOHNSON SYNDROME [None]
  - VOLUME BLOOD INCREASED [None]
